FAERS Safety Report 21680151 (Version 1)
Quarter: 2022Q4

REPORT INFORMATION
  Report Type: Report from Study
  Country: US (occurrence: US)
  Receive Date: 20221205
  Receipt Date: 20221205
  Transmission Date: 20230113
  Serious: No
  Sender: FDA-Public Use
  Company Number: US-ABBVIE-4198067

PATIENT
  Age: 75 Year
  Sex: Female
  Weight: 48.08 kg

DRUGS (2)
  1. DUOPA [Suspect]
     Active Substance: CARBIDOPA\LEVODOPA
     Indication: Parkinson^s disease
  2. DUOPA [Suspect]
     Active Substance: CARBIDOPA\LEVODOPA
     Dates: start: 202106

REACTIONS (3)
  - Confusional state [Recovering/Resolving]
  - Device use error [Not Recovered/Not Resolved]
  - Cerebral atrophy [Not Recovered/Not Resolved]

NARRATIVE: CASE EVENT DATE: 20221104
